FAERS Safety Report 15300319 (Version 2)
Quarter: 2018Q3

REPORT INFORMATION
  Report Type: Spontaneous
  Country: US (occurrence: US)
  Receive Date: 20180821
  Receipt Date: 20180828
  Transmission Date: 20181010
  Serious: Yes (Hospitalization, Other)
  Sender: FDA-Public Use
  Company Number: US-GLAXOSMITHKLINE-US2018145436

PATIENT
  Age: 69 Year
  Sex: Female

DRUGS (2)
  1. BREO ELLIPTA [Suspect]
     Active Substance: FLUTICASONE FUROATE\VILANTEROL TRIFENATATE
     Indication: ASTHMA
     Dosage: UNK
     Dates: start: 2016
  2. VENTOLIN HFA [Suspect]
     Active Substance: ALBUTEROL SULFATE
     Indication: ASTHMA
     Dosage: UNK
     Dates: start: 2006

REACTIONS (8)
  - Pneumonia [Unknown]
  - Unresponsive to stimuli [Recovered/Resolved]
  - Central venous catheterisation [Unknown]
  - Eosinophil count increased [Unknown]
  - Septic shock [Unknown]
  - Dyspnoea [Unknown]
  - Toxic shock syndrome [Unknown]
  - Drug ineffective [Unknown]

NARRATIVE: CASE EVENT DATE: 20180625
